FAERS Safety Report 15344418 (Version 2)
Quarter: 2018Q4

REPORT INFORMATION
  Report Type: Spontaneous
  Country: US (occurrence: US)
  Receive Date: 20180903
  Receipt Date: 20181112
  Transmission Date: 20190204
  Serious: Yes (Other)
  Sender: FDA-Public Use
  Company Number: US-SA-2018SA237912

PATIENT
  Age: 54 Year
  Sex: Female
  Weight: 70.3 kg

DRUGS (7)
  1. TAXOTERE [Suspect]
     Active Substance: DOCETAXEL
     Indication: BREAST CANCER FEMALE
     Dosage: 140-156 MG Q3W
     Route: 042
     Dates: start: 20110505, end: 20110505
  2. TAXOL [Concomitant]
     Active Substance: PACLITAXEL
     Dosage: 300 MG
     Dates: start: 20110729
  3. HERCEPTIN [Concomitant]
     Active Substance: TRASTUZUMAB
  4. ALLEGRA [Concomitant]
     Active Substance: FEXOFENADINE HYDROCHLORIDE
     Dosage: UNK
     Dates: start: 1998
  5. PARAPLATIN [Concomitant]
     Active Substance: CARBOPLATIN
  6. XANAX [Concomitant]
     Active Substance: ALPRAZOLAM
     Dosage: UNK
     Route: 065
     Dates: start: 2008, end: 2011
  7. TAXOTERE [Suspect]
     Active Substance: DOCETAXEL
     Dosage: 140-156 MG
     Route: 042
     Dates: start: 20110811, end: 20110811

REACTIONS (2)
  - Alopecia [Recovering/Resolving]
  - Psychological trauma [Unknown]

NARRATIVE: CASE EVENT DATE: 201105
